FAERS Safety Report 8396868 (Version 2)
Quarter: 2014Q3

REPORT INFORMATION
  Report Type: Spontaneous
  Country: DE (occurrence: DE)
  Receive Date: 20120209
  Receipt Date: 20140728
  Transmission Date: 20150326
  Serious: Yes (Life-Threatening)
  Sender: FDA-Public Use
  Company Number: DE-RANBAXY-2012R1-52195

PATIENT
  Age: 43 Year
  Sex: Male

DRUGS (4)
  1. LORAZEPAM. [Suspect]
     Active Substance: LORAZEPAM
     Indication: SELF-MEDICATION
     Dosage: UNK
     Route: 048
  2. METHADONE [Suspect]
     Active Substance: METHADONE HYDROCHLORIDE
     Indication: DRUG DEPENDENCE
     Dosage: UNK
     Route: 048
     Dates: start: 200804
  3. WEIN [Suspect]
     Active Substance: WINE
     Indication: PRODUCT USED FOR UNKNOWN INDICATION
     Route: 048
  4. LYRICA [Suspect]
     Active Substance: PREGABALIN
     Indication: ANXIETY DISORDER
     Dosage: UNK
     Route: 048
     Dates: start: 20111213

REACTIONS (4)
  - Overdose [Recovered/Resolved]
  - Polysubstance dependence [Unknown]
  - Coma [Recovered/Resolved]
  - Polysubstance dependence [None]

NARRATIVE: CASE EVENT DATE: 20111213
